FAERS Safety Report 6046120-X (Version None)
Quarter: 2009Q1

REPORT INFORMATION
  Report Type: 
  Country: None (occurrence: None)
  Receive Date: 20090121
  Receipt Date: 20090121
  Transmission Date: 20090719
  Serious: Yes (Hospitalization)
  Sender: FDA-Public Use
  Company Number: None

PATIENT
  Age: 33 Year
  Sex: Male
  Weight: 69.8539 kg

DRUGS (1)
  1. TARCEVA [Suspect]
     Dates: start: 20090106

REACTIONS (2)
  - LARYNGEAL OEDEMA [None]
  - STRIDOR [None]
